FAERS Safety Report 5888935-4 (Version None)
Quarter: 2008Q3

REPORT INFORMATION
  Report Type: 
  Country: None (occurrence: None)
  Receive Date: 20080917
  Receipt Date: 20080902
  Transmission Date: 20090109
  Serious: Yes (Death, Hospitalization)
  Sender: FDA-Public Use
  Company Number: 2008002188

PATIENT
  Age: 53 Year
  Sex: Female

DRUGS (7)
  1. ERLOTINIB (ERLOTINIB) (TABLET) (ERLOTINIB) [Suspect]
     Indication: PANCREATIC CARCINOMA
     Dosage: (150 MG, QD), ORAL
     Route: 048
     Dates: start: 20071123
  2. GEMCITABINE [Suspect]
     Dosage: (1500 MG, DAYS, 8 AND 15), INTRAVENOUS
     Route: 042
     Dates: end: 20080328
  3. OXYCODONE HCL [Concomitant]
  4. METOCLOPRAMIDE HCL [Concomitant]
  5. SPRINOLACONTE (SPIRNOLACTONE) [Concomitant]
  6. ENOXAPARIN SODIUM [Concomitant]
  7. OMEPRAZOLE [Concomitant]

REACTIONS (1)
  - ASTHENIA [None]
